FAERS Safety Report 12426252 (Version 2)
Quarter: 2016Q2

REPORT INFORMATION
  Report Type: Spontaneous
  Country: JP (occurrence: JP)
  Receive Date: 20160601
  Receipt Date: 20160621
  Transmission Date: 20160815
  Serious: Yes (Death)
  Sender: FDA-Public Use
  Company Number: JP-JNJFOC-20151023241

PATIENT
  Age: 71 Year
  Sex: Female

DRUGS (5)
  1. MEROPENEM. [Concomitant]
     Active Substance: MEROPENEM
     Indication: PYREXIA
     Route: 065
     Dates: start: 20151015, end: 20151015
  2. MEROPENEM. [Concomitant]
     Active Substance: MEROPENEM
     Indication: ARTHRITIS
     Route: 065
     Dates: start: 20151015, end: 20151015
  3. RISPERDAL [Suspect]
     Active Substance: RISPERIDONE
     Indication: DELIRIUM
     Route: 048
     Dates: start: 20151016, end: 20151016
  4. DICLOFENAC SODIUM. [Concomitant]
     Active Substance: DICLOFENAC SODIUM
     Indication: PAIN
     Route: 054
     Dates: start: 20151014, end: 20151016
  5. MEROPENEM. [Concomitant]
     Active Substance: MEROPENEM
     Indication: SEPSIS
     Route: 065
     Dates: start: 20151015, end: 20151015

REACTIONS (4)
  - Product use issue [Unknown]
  - Neuroleptic malignant syndrome [Fatal]
  - Seizure [Fatal]
  - Off label use [Unknown]

NARRATIVE: CASE EVENT DATE: 20151016
